FAERS Safety Report 19358201 (Version 1)
Quarter: 2021Q2

REPORT INFORMATION
  Report Type: Spontaneous
  Country: US (occurrence: US)
  Receive Date: 20210601
  Receipt Date: 20210601
  Transmission Date: 20210717
  Serious: No
  Sender: FDA-Public Use
  Company Number: US-TEVA-2021-US-1912639

PATIENT
  Age: 49 Year
  Sex: Female

DRUGS (16)
  1. LUNESTA [Concomitant]
     Active Substance: ESZOPICLONE
     Dosage: AT BEDTIME
  2. SUCRALFATE. [Concomitant]
     Active Substance: SUCRALFATE
  3. PROAIR HFA [Concomitant]
     Active Substance: ALBUTEROL SULFATE
     Dosage: AS NEEDED
     Route: 055
  4. ZOFRAN [Concomitant]
     Active Substance: ONDANSETRON HYDROCHLORIDE
     Indication: NAUSEA
     Dosage: AS NEEDED
  5. OXYCODONE [Concomitant]
     Active Substance: OXYCODONE
     Dosage: 40 MILLIGRAM DAILY;
  6. IMTREX [Concomitant]
     Dosage: AS NEEDED
  7. FLUTICASONE PROPIONATE. [Concomitant]
     Active Substance: FLUTICASONE PROPIONATE
     Dosage: 1 SPRAY IN EACH NOSTRIL
  8. IMTREX [Concomitant]
     Indication: HEADACHE
     Dosage: 6MG/ 0.5ML AS NEEDED
  9. ACYCLOVIR. [Concomitant]
     Active Substance: ACYCLOVIR
     Dosage: 800 MILLIGRAM DAILY;
  10. NARCAN [Concomitant]
     Active Substance: NALOXONE HYDROCHLORIDE
  11. GEMFIBROZIL. [Concomitant]
     Active Substance: GEMFIBROZIL
     Dosage: 1200 MILLIGRAM DAILY;
  12. VITAMIN C [Concomitant]
     Active Substance: ASCORBIC ACID
  13. METHOCARBMABOL [Concomitant]
     Dosage: 3000 MILLIGRAM DAILY;
  14. LEVOTHYROXINE SODIUM. [Concomitant]
     Active Substance: LEVOTHYROXINE SODIUM
     Dosage: 50 MILLIGRAM DAILY;
  15. AJOVY [Suspect]
     Active Substance: FREMANEZUMAB-VFRM
     Indication: HEADACHE
     Dosage: 1.5ML
     Route: 065
     Dates: start: 20200826
  16. IPRATROPIUM ALBUTEROL [Concomitant]
     Active Substance: ALBUTEROL\IPRATROPIUM
     Dosage: 5?2.5 (3)MG AS NEEDED

REACTIONS (4)
  - Device issue [Unknown]
  - Accidental exposure to product [Unknown]
  - Wrong technique in product usage process [Unknown]
  - Bedridden [Unknown]

NARRATIVE: CASE EVENT DATE: 20200912
